FAERS Safety Report 5153164-9 (Version None)
Quarter: 2006Q4

REPORT INFORMATION
  Report Type: 
  Country: None (occurrence: None)
  Receive Date: 20061117
  Receipt Date: 20060418
  Transmission Date: 20070319
  Serious: Yes (Other)
  Sender: FDA-Public Use
  Company Number: 2006UW07125

PATIENT
  Age: 27709 Day
  Sex: Female
  Weight: 70.9 kg

DRUGS (2)
  1. CRESTOR [Suspect]
     Indication: BLOOD CHOLESTEROL
     Route: 048
     Dates: start: 20060224, end: 20060314
  2. NIACIN [Concomitant]
     Indication: BLOOD CHOLESTEROL
     Route: 048
     Dates: start: 20060314, end: 20060410

REACTIONS (2)
  - ABDOMINAL DISTENSION [None]
  - PAIN [None]
